FAERS Safety Report 7439129-2 (Version None)
Quarter: 2011Q2

REPORT INFORMATION
  Report Type: 
  Country: None (occurrence: None)
  Receive Date: 20110427
  Receipt Date: 20101227
  Transmission Date: 20111010
  Serious: Yes (Other)
  Sender: FDA-Public Use
  Company Number: US-BAYER-201019770NA

PATIENT
  Age: 24 Year
  Sex: Female
  Weight: 77.098 kg

DRUGS (8)
  1. MULTI-VITAMINS [Concomitant]
  2. HERBAL PREPARATION [Concomitant]
  3. ASCORBIC ACID [Concomitant]
  4. YASMIN [Suspect]
     Indication: CONTRACEPTION
     Dosage: 1 DF, UNK
     Route: 048
     Dates: start: 20030101, end: 20060101
  5. YAZ [Suspect]
     Indication: CONTRACEPTION
     Dosage: 1 UNK, UNK
     Route: 048
     Dates: start: 20030101, end: 20060101
  6. IBUPROFEN [Concomitant]
     Dosage: UNK
  7. I.V. SOLUTIONS [Concomitant]
     Dosage: UNK
     Dates: start: 20071215
  8. ZOFRAN [Concomitant]
     Dosage: UNK
     Dates: start: 20071215

REACTIONS (3)
  - CHOLECYSTITIS CHRONIC [None]
  - CHOLELITHIASIS [None]
  - CHOLECYSTITIS ACUTE [None]
